APPROVED DRUG PRODUCT: ALOSETRON HYDROCHLORIDE
Active Ingredient: ALOSETRON HYDROCHLORIDE
Strength: EQ 1MG BASE
Dosage Form/Route: TABLET;ORAL
Application: A209180 | Product #002 | TE Code: AB
Applicant: RISING PHARMA HOLDINGS INC
Approved: Jan 14, 2019 | RLD: No | RS: No | Type: RX